FAERS Safety Report 10641435 (Version 1)
Quarter: 2014Q4

REPORT INFORMATION
  Report Type: Spontaneous
  Country: ES (occurrence: ES)
  Receive Date: 20141209
  Receipt Date: 20141209
  Transmission Date: 20150529
  Serious: Yes (Hospitalization, Other)
  Sender: FDA-Public Use
  Company Number: ES-GLAXOSMITHKLINE-ES2014029731

PATIENT

DRUGS (8)
  1. FLUTICASONE [Suspect]
     Active Substance: FLUTICASONE\FLUTICASONE PROPIONATE
     Route: 055
     Dates: start: 2009
  2. XOLAIR [Suspect]
     Active Substance: OMALIZUMAB
     Indication: ASTHMA
     Route: 065
     Dates: start: 201404
  3. VENTOLIN [Suspect]
     Active Substance: ALBUTEROL SULFATE
     Route: 055
     Dates: start: 2009
  4. LOSARTAN [Suspect]
     Active Substance: LOSARTAN
     Route: 065
     Dates: start: 2014
  5. DAXAS [Suspect]
     Active Substance: ROFLUMILAST
     Route: 048
     Dates: start: 2009
  6. CITALOPRAM [Suspect]
     Active Substance: CITALOPRAM HYDROBROMIDE
     Route: 065
     Dates: start: 2014
  7. MONTELUKAST [Suspect]
     Active Substance: MONTELUKAST SODIUM
     Route: 065
     Dates: start: 2009
  8. EKLIRA [Suspect]
     Active Substance: ACLIDINIUM BROMIDE
     Route: 055
     Dates: start: 2014

REACTIONS (1)
  - Cerebrovascular accident [Recovered/Resolved with Sequelae]

NARRATIVE: CASE EVENT DATE: 20140915
